FAERS Safety Report 5175284-5 (Version None)
Quarter: 2006Q4

REPORT INFORMATION
  Report Type: 
  Country: None (occurrence: None)
  Receive Date: 20061211
  Receipt Date: 20061211
  Transmission Date: 20070319
  Serious: Yes (Hospitalization)
  Sender: FDA-Public Use
  Company Number: None

PATIENT
  Age: 70 Year
  Sex: Male
  Weight: 84.8226 kg

DRUGS (21)
  1. AMIODARONE HCL [Suspect]
     Indication: ACUTE MYOCARDIAL INFARCTION
     Dosage: SEE IMAGE
     Route: 042
     Dates: start: 20060926, end: 20060927
  2. AMIODARONE HCL [Suspect]
     Indication: ATRIAL FIBRILLATION
     Dosage: SEE IMAGE
     Route: 042
     Dates: start: 20060926, end: 20060927
  3. AMIODARONE HCL [Suspect]
     Indication: ACUTE MYOCARDIAL INFARCTION
     Dosage: SEE IMAGE
     Route: 042
     Dates: start: 20060928, end: 20060929
  4. AMIODARONE HCL [Suspect]
     Indication: ATRIAL FIBRILLATION
     Dosage: SEE IMAGE
     Route: 042
     Dates: start: 20060928, end: 20060929
  5. ACETAMINOPHEN [Concomitant]
  6. ASPIRIN [Concomitant]
  7. ATENOLOL [Concomitant]
  8. BISACODYL [Concomitant]
  9. CEFUROXIME [Concomitant]
  10. PLAVIX [Concomitant]
  11. CILOSTAZOL [Concomitant]
  12. FAMOTIDINE [Concomitant]
  13. FUROSEMIDE [Concomitant]
  14. PERCOCET [Concomitant]
  15. PIOGLITAZONE HCL [Concomitant]
  16. METFORMIN HCL [Concomitant]
  17. NITROGLYCERIN [Concomitant]
  18. POTASSIUM CHLORIDE [Concomitant]
  19. RAMIPRIL [Concomitant]
  20. SIMVASTATIN [Concomitant]
  21. VANCOMYCIN [Concomitant]

REACTIONS (3)
  - CELLULITIS [None]
  - INCISION SITE ERYTHEMA [None]
  - INFUSION SITE REACTION [None]
